FAERS Safety Report 4645669-1 (Version None)
Quarter: 2005Q2

REPORT INFORMATION
  Report Type: 
  Country: None (occurrence: None)
  Receive Date: 20050331
  Receipt Date: 20050218
  Transmission Date: 20051028
  Serious: No
  Sender: FDA-Public Use
  Company Number: 05P-163-0291311-00

PATIENT
  Age: 42 Year
  Sex: Female
  Weight: 141.5 kg

DRUGS (13)
  1. HUMIRA [Suspect]
     Indication: RHEUMATOID ARTHRITIS
     Dosage: 40 MG, 1 IN 2 WK, SUBCUTANEOUS
     Route: 058
     Dates: start: 20030101, end: 20050210
  2. INSULIN LISPRO [Concomitant]
  3. LEVOTHYROXINE SODIUM [Concomitant]
  4. HYDROXYCHLOROQUINE SULFATE [Concomitant]
  5. BUPROPION HYDROCHLORIDE [Concomitant]
  6. MODAFINIL [Concomitant]
  7. CELECOXIB [Concomitant]
  8. DILTIAZEM [Concomitant]
  9. HYDROCHLOROTHIAZIDE [Concomitant]
  10. FOLIC ACID [Concomitant]
  11. TEMAZEPAM [Concomitant]
  12. ORLISTAT [Concomitant]
  13. TOCOPHEROL CONCENTRATE CAP [Concomitant]

REACTIONS (5)
  - CONJUNCTIVITIS INFECTIVE [None]
  - EAR INFECTION [None]
  - INFLUENZA LIKE ILLNESS [None]
  - INJECTION SITE ERYTHEMA [None]
  - INJECTION SITE PRURITUS [None]
